FAERS Safety Report 7512133-1 (Version None)
Quarter: 2011Q2

REPORT INFORMATION
  Report Type: 
  Country: None (occurrence: None)
  Receive Date: 20110519
  Receipt Date: 20110506
  Transmission Date: 20111010
  Serious: Yes (Hospitalization)
  Sender: FDA-Public Use
  Company Number: 2011-1408

PATIENT
  Age: 82 Year
  Sex: Female

DRUGS (3)
  1. SOMAVERT [Concomitant]
  2. SOMATULINE AUTOSOLUTION 90MG (LANREOTIDE AUTOGEL) (LANREOTIDE) (LANREO [Suspect]
     Indication: ACROMEGALY
     Dosage: 90 MG (90 MG, 1 IN 28 D), INTRAMUSCULAR
     Route: 030
     Dates: start: 20070427
  3. BLOOD THINNER MEDICATION (NOS) [Concomitant]

REACTIONS (1)
  - HOSPITALISATION [None]
